FAERS Safety Report 8921752 (Version 3)
Quarter: 2013Q1

REPORT INFORMATION
  Report Type: Report from Study
  Country: JP (occurrence: JP)
  Receive Date: 20121121
  Receipt Date: 20130204
  Transmission Date: 20140127
  Serious: Yes (Hospitalization)
  Sender: FDA-Public Use
  Company Number: JP-JNJFOC-20121108750

PATIENT
  Age: 77 Year
  Sex: Female
  Weight: 54 kg

DRUGS (14)
  1. SIMPONI [Suspect]
     Indication: RHEUMATOID ARTHRITIS
     Route: 058
     Dates: start: 20120329
  2. SIMPONI [Suspect]
     Indication: RHEUMATOID ARTHRITIS
     Route: 058
     Dates: start: 20120223
  3. SIMPONI [Suspect]
     Indication: RHEUMATOID ARTHRITIS
     Route: 058
     Dates: start: 20120126
  4. SIMPONI [Suspect]
     Indication: RHEUMATOID ARTHRITIS
     Route: 058
     Dates: start: 20111229
  5. SIMPONI [Suspect]
     Indication: RHEUMATOID ARTHRITIS
     Route: 058
     Dates: start: 20111201
  6. SIMPONI [Suspect]
     Indication: RHEUMATOID ARTHRITIS
     Route: 058
     Dates: start: 20111031
  7. PREDNISOLONE [Concomitant]
     Indication: RHEUMATOID ARTHRITIS
     Route: 048
     Dates: start: 20110826
  8. NORVASC [Concomitant]
     Route: 048
  9. PARIET [Concomitant]
     Route: 048
  10. MUCOSTA [Concomitant]
     Route: 048
  11. MUCOSTA [Concomitant]
     Route: 048
  12. ZOSYN [Concomitant]
     Indication: SKIN ULCER
     Route: 050
  13. AMIKACIN SULFATE [Concomitant]
     Indication: SKIN ULCER
     Route: 030
  14. CEFTRIAXONE SODIUM [Concomitant]
     Indication: SKIN ULCER
     Route: 042

REACTIONS (1)
  - Infected skin ulcer [Not Recovered/Not Resolved]
